FAERS Safety Report 7985098-6 (Version None)
Quarter: 2011Q4

REPORT INFORMATION
  Report Type: 
  Country: None (occurrence: None)
  Receive Date: 20111216
  Receipt Date: 20111212
  Transmission Date: 20120403
  Serious: Yes (Death)
  Sender: FDA-Public Use
  Company Number: PHHY2011JP109043

PATIENT
  Age: 86 Year
  Sex: Male

DRUGS (8)
  1. CANDESARTAN CILEXETIL [Concomitant]
  2. RIVASTIGMINE [Suspect]
     Indication: DEMENTIA ALZHEIMER'S TYPE
     Dosage: UNK
     Route: 062
     Dates: start: 20110716
  3. VESICARE [Concomitant]
  4. PRORENAL [Concomitant]
  5. PLETAL [Concomitant]
  6. CONIEL [Concomitant]
  7. RIVASTIGMINE [Suspect]
     Dosage: 18 MG, DAILY
     Route: 062
     Dates: end: 20111203
  8. GLYBURIDE [Concomitant]

REACTIONS (1)
  - PULMONARY OEDEMA [None]
